FAERS Safety Report 6108833-0 (Version None)
Quarter: 2009Q1

REPORT INFORMATION
  Report Type: 
  Country: None (occurrence: None)
  Receive Date: 20090310
  Receipt Date: 20090306
  Transmission Date: 20090719
  Serious: Yes (Other)
  Sender: FDA-Public Use
  Company Number: DE-BRISTOL-MYERS SQUIBB COMPANY-14534424

PATIENT
  Age: 57 Year
  Sex: Female
  Weight: 82 kg

DRUGS (4)
  1. CETUXIMAB [Suspect]
     Indication: COLORECTAL CANCER METASTATIC
     Dosage: 1XDAY,WEEKLY
     Route: 042
     Dates: start: 20081210, end: 20081210
  2. CAMPTOSAR [Suspect]
     Indication: COLORECTAL CANCER METASTATIC
     Route: 042
     Dates: start: 20081210, end: 20081210
  3. FLUOROURACIL [Suspect]
     Indication: COLORECTAL CANCER METASTATIC
     Dosage: REGMEN 2: 4640 MG IV ON 10DEC08 TO UNK
     Route: 040
     Dates: start: 20081210, end: 20081210
  4. FOLINIC ACID [Suspect]
     Indication: COLORECTAL CANCER METASTATIC
     Route: 042

REACTIONS (1)
  - THROMBOSIS [None]
